FAERS Safety Report 8400643-4 (Version None)
Quarter: 2012Q2

REPORT INFORMATION
  Report Type: 
  Country: None (occurrence: None)
  Receive Date: 20120531
  Receipt Date: 20120528
  Transmission Date: 20120825
  Serious: Yes (Other)
  Sender: FDA-Public Use
  Company Number: CA-ROCHE-1073482

PATIENT
  Sex: Female
  Weight: 69.916 kg

DRUGS (8)
  1. MABTHERA [Suspect]
     Indication: IDIOPATHIC THROMBOCYTOPENIC PURPURA
     Route: 042
     Dates: start: 20120514
  2. LEVOTHYROXINE SODIUM [Concomitant]
  3. LAMOTRIGINE [Concomitant]
  4. DIPHENHYDRAMINE HCL [Concomitant]
     Indication: PREMEDICATION
     Route: 048
     Dates: start: 20120522, end: 20120522
  5. ACETAMINOPHEN [Concomitant]
     Indication: PREMEDICATION
     Route: 048
     Dates: start: 20120522, end: 20120522
  6. SOLU-CORTEF [Concomitant]
     Indication: PREMEDICATION
     Route: 042
     Dates: start: 20120522, end: 20120522
  7. MABTHERA [Suspect]
     Route: 042
     Dates: start: 20120528
  8. PREDNISONE TAB [Concomitant]

REACTIONS (1)
  - CONVULSION [None]
